FAERS Safety Report 8285890-7 (Version None)
Quarter: 2012Q2

REPORT INFORMATION
  Report Type: 
  Country: None (occurrence: None)
  Receive Date: 20120414
  Receipt Date: 20100308
  Transmission Date: 20120825
  Serious: Yes (Other)
  Sender: FDA-Public Use
  Company Number: PHFR2010GB006214

PATIENT
  Sex: Female

DRUGS (2)
  1. EXJADE [Suspect]
     Dates: start: 20090901
  2. DEFEROXAMINE MESYLATE [Concomitant]

REACTIONS (8)
  - RENAL FAILURE [None]
  - ATRIAL FIBRILLATION [None]
  - HYPERTENSION [None]
  - HEADACHE [None]
  - NASOPHARYNGITIS [None]
  - DIARRHOEA [None]
  - CHOLELITHIASIS [None]
  - UTERINE LEIOMYOMA [None]
